FAERS Safety Report 12847101 (Version 1)
Quarter: 2016Q4

REPORT INFORMATION
  Report Type: Spontaneous
  Country: GB (occurrence: GB)
  Receive Date: 20161014
  Receipt Date: 20161014
  Transmission Date: 20170207
  Serious: Yes (Other)
  Sender: FDA-Public Use
  Company Number: GB-ELI_LILLY_AND_COMPANY-GB201610004057

PATIENT

DRUGS (6)
  1. ERBITUX [Suspect]
     Active Substance: CETUXIMAB
     Indication: K-RAS GENE MUTATION
     Dosage: 250 MG/M2, WEEKLY (1/W)
     Route: 065
  2. DALOTUZUMAB [Suspect]
     Active Substance: DALOTUZUMAB
     Indication: K-RAS GENE MUTATION
     Dosage: 7.5 MG/KG, EVERY SECOND WEEK
     Route: 065
  3. ERBITUX [Suspect]
     Active Substance: CETUXIMAB
     Indication: COLORECTAL CANCER METASTATIC
     Dosage: 400 MG/M2, WEEKLY (1/W)
     Route: 065
  4. DALOTUZUMAB [Suspect]
     Active Substance: DALOTUZUMAB
     Indication: COLORECTAL CANCER METASTATIC
     Dosage: 15 MG/KG, UNKNOWN
     Route: 065
  5. IRINOTECAN [Suspect]
     Active Substance: IRINOTECAN
     Indication: COLORECTAL CANCER METASTATIC
     Dosage: UNK
  6. IRINOTECAN [Suspect]
     Active Substance: IRINOTECAN
     Indication: K-RAS GENE MUTATION
     Dosage: UNK UNK, UNKNOWN
     Route: 065

REACTIONS (1)
  - Hyperglycaemia [Unknown]
